FAERS Safety Report 5605551-X (Version None)
Quarter: 2008Q1

REPORT INFORMATION
  Report Type: 
  Country: None (occurrence: None)
  Receive Date: 20080129
  Receipt Date: 20080117
  Transmission Date: 20080703
  Serious: No
  Sender: FDA-Public Use
  Company Number: JP-JNJFOC-20080103513

PATIENT
  Age: 33 Year
  Sex: Male

DRUGS (5)
  1. RISPERDAL [Suspect]
     Route: 048
  2. RISPERDAL [Suspect]
     Route: 048
  3. RISPERDAL [Suspect]
     Route: 048
  4. RISPERDAL [Suspect]
     Indication: SCHIZOPHRENIA
     Route: 048
  5. FLUVOXAMINE MALEATE [Interacting]
     Indication: SCHIZOPHRENIA
     Route: 048

REACTIONS (4)
  - DRUG INTERACTION [None]
  - EJACULATION DISORDER [None]
  - LIBIDO DECREASED [None]
  - MEIGE'S SYNDROME [None]
